FAERS Safety Report 15598234 (Version 1)
Quarter: 2018Q4

REPORT INFORMATION
  Report Type: Spontaneous
  Country: US (occurrence: US)
  Receive Date: 20181108
  Receipt Date: 20181108
  Transmission Date: 20190205
  Serious: No
  Sender: FDA-Public Use
  Company Number: US-ALLERGAN-1764848US

PATIENT
  Age: 65 Year
  Sex: Male
  Weight: 61.22 kg

DRUGS (4)
  1. RAPAFLO [Suspect]
     Active Substance: SILODOSIN
     Indication: PROSTATOMEGALY
     Dosage: 8 MG, QD
     Route: 048
  2. RAPAFLO [Suspect]
     Active Substance: SILODOSIN
     Indication: MICTURITION URGENCY
     Dosage: 4 MG, QD
     Route: 048
     Dates: start: 201710, end: 201710
  3. METOPROLOL. [Concomitant]
     Active Substance: METOPROLOL
     Indication: PRODUCT USED FOR UNKNOWN INDICATION
     Dosage: UNK
     Route: 065
  4. BUPROPION. [Concomitant]
     Active Substance: BUPROPION
     Indication: PRODUCT USED FOR UNKNOWN INDICATION
     Dosage: UNK
     Route: 065

REACTIONS (2)
  - Male orgasmic disorder [Unknown]
  - Drug ineffective [Unknown]

NARRATIVE: CASE EVENT DATE: 201710
